FAERS Safety Report 4408323-7 (Version None)
Quarter: 2004Q3

REPORT INFORMATION
  Report Type: 
  Country: None (occurrence: None)
  Receive Date: 20040722
  Receipt Date: 20040706
  Transmission Date: 20050211
  Serious: No
  Sender: FDA-Public Use
  Company Number: B0338331A

PATIENT
  Age: 55 Year
  Sex: Male

DRUGS (3)
  1. COREG [Suspect]
  2. ALPRAZOLAM [Concomitant]
  3. PAROXETINE HYDROCHLORIDE [Concomitant]

REACTIONS (7)
  - ANAPHYLACTIC REACTION [None]
  - ARTHROPOD STING [None]
  - BLOOD PRESSURE IMMEASURABLE [None]
  - CORONARY ARTERY DISEASE [None]
  - CORONARY ARTERY OCCLUSION [None]
  - LOSS OF CONSCIOUSNESS [None]
  - MYOCARDIAL INFARCTION [None]
